FAERS Safety Report 7260248-8 (Version None)
Quarter: 2011Q1

REPORT INFORMATION
  Report Type: 
  Country: None (occurrence: None)
  Receive Date: 20110130
  Receipt Date: 20100907
  Transmission Date: 20110831
  Serious: No
  Sender: FDA-Public Use
  Company Number: US-ABBOTT-10P-163-0669963-00

PATIENT
  Sex: Female
  Weight: 65.83 kg

DRUGS (3)
  1. HUMIRA [Suspect]
     Indication: CROHN'S DISEASE
     Dates: start: 20100718
  2. MULTI-VITAMINS [Concomitant]
     Indication: VITAMIN SUPPLEMENTATION
  3. SYNTHROID [Concomitant]
     Indication: HYPOTHYROIDISM
     Dosage: ON FOR SEVERAL YEARS
     Route: 048

REACTIONS (2)
  - CROHN'S DISEASE [None]
  - DIARRHOEA [None]
